FAERS Safety Report 7150162-0 (Version None)
Quarter: 2010Q4

REPORT INFORMATION
  Report Type: 
  Country: None (occurrence: None)
  Receive Date: 20101207
  Receipt Date: 20101207
  Transmission Date: 20110411
  Serious: Yes (Life-Threatening, Other)
  Sender: FDA-Public Use
  Company Number: None

PATIENT
  Age: 58 Year
  Sex: Male
  Weight: 74.8435 kg

DRUGS (1)
  1. PROPOXYPHENE 65 ACETAMINOPHEN COMPOUND CAP [Suspect]
     Indication: BACK PAIN
     Dosage: 1 TWICW A DAY BUCCAL
     Route: 002
     Dates: start: 20070101, end: 20101029

REACTIONS (2)
  - HEART RATE IRREGULAR [None]
  - PALPITATIONS [None]
